FAERS Safety Report 7919675-5 (Version None)
Quarter: 2011Q4

REPORT INFORMATION
  Report Type: 
  Country: None (occurrence: None)
  Receive Date: 20111115
  Receipt Date: 20111101
  Transmission Date: 20120403
  Serious: Yes (Death, Hospitalization, Other)
  Sender: FDA-Public Use
  Company Number: 2011MA015815

PATIENT
  Age: 54 Year
  Sex: Male
  Weight: 82.5547 kg

DRUGS (17)
  1. AUGMENTIN [Concomitant]
  2. GLUCOPHAGE [Concomitant]
  3. LASIX [Concomitant]
  4. AMOXICILLIN [Concomitant]
  5. HYDROCODONE BITARTRATE [Concomitant]
  6. NOVOLIN INSULIN [Concomitant]
  7. COREG [Concomitant]
  8. MAVIK [Concomitant]
  9. IV FLUIDS [Concomitant]
  10. LISINOPRIL [Concomitant]
  11. SPIRONOLACTONE [Concomitant]
  12. DEMADEX [Concomitant]
  13. DIGOXIN [Suspect]
     Indication: CARDIAC DISORDER
     Dosage: 0.25 MG;QD;
     Dates: start: 20050924, end: 20080401
  14. ALDACTONE [Concomitant]
  15. CLINDAMYCIN [Concomitant]
  16. GLIPIZIDE [Concomitant]
  17. METFORMIN HCL [Concomitant]

REACTIONS (37)
  - ACTIVITIES OF DAILY LIVING IMPAIRED [None]
  - RENAL FAILURE [None]
  - ECONOMIC PROBLEM [None]
  - EMOTIONAL DISORDER [None]
  - SYNCOPE [None]
  - HYPERGLYCAEMIA [None]
  - AORTIC VALVE SCLEROSIS [None]
  - TOXICITY TO VARIOUS AGENTS [None]
  - ATRIOVENTRICULAR BLOCK FIRST DEGREE [None]
  - BUNDLE BRANCH BLOCK RIGHT [None]
  - ANXIETY [None]
  - IMPAIRED WORK ABILITY [None]
  - ANHEDONIA [None]
  - VOMITING [None]
  - FEAR [None]
  - DIARRHOEA [None]
  - FALL [None]
  - VENTRICULAR TACHYCARDIA [None]
  - PULMONARY CONGESTION [None]
  - PAIN [None]
  - SOCIAL AVOIDANT BEHAVIOUR [None]
  - LACERATION [None]
  - CARDIAC DISORDER [None]
  - MITRAL VALVE INCOMPETENCE [None]
  - INJURY [None]
  - HEADACHE [None]
  - MENTAL DISORDER [None]
  - CARDIAC VALVE DISEASE [None]
  - TRICUSPID VALVE INCOMPETENCE [None]
  - ASTHENIA [None]
  - HYPERTENSION [None]
  - MITRAL VALVE DISEASE [None]
  - NAUSEA [None]
  - DEPRESSION [None]
  - ABASIA [None]
  - RENAL DISORDER [None]
  - GENERAL PHYSICAL HEALTH DETERIORATION [None]
